FAERS Safety Report 8427437-8 (Version None)
Quarter: 2012Q2

REPORT INFORMATION
  Report Type: 
  Country: None (occurrence: None)
  Receive Date: 20120611
  Receipt Date: 20120606
  Transmission Date: 20120825
  Serious: Yes (Other)
  Sender: FDA-Public Use
  Company Number: PHHY2012DE048617

PATIENT
  Sex: Female

DRUGS (2)
  1. EXTAVIA [Suspect]
     Indication: MULTIPLE SCLEROSIS
     Dosage: 1 ML, QOD
     Route: 058
     Dates: start: 20120501
  2. ANTIBIOTICS [Concomitant]

REACTIONS (5)
  - OTITIS MEDIA [None]
  - ACUTE TONSILLITIS [None]
  - CONJUNCTIVITIS [None]
  - URINARY RETENTION [None]
  - MULTIPLE SCLEROSIS RELAPSE [None]
